FAERS Safety Report 9110100 (Version 3)
Quarter: 2013Q2

REPORT INFORMATION
  Report Type: Spontaneous
  Country: FR (occurrence: FR)
  Receive Date: 20130222
  Receipt Date: 20130510
  Transmission Date: 20140414
  Serious: Yes (Hospitalization)
  Sender: FDA-Public Use
  Company Number: PHHY2013FR015588

PATIENT
  Age: 70 Year
  Sex: Female
  Weight: 65 kg

DRUGS (6)
  1. METFORMIN [Suspect]
     Dosage: 3000 MG, DAILY
  2. METFORMIN [Suspect]
     Dosage: 1700 MG, DAILY
  3. INDAPAMIDE [Suspect]
     Dosage: 2.5 MG, DAILY
  4. KETOPROFEN [Suspect]
     Dosage: 100 MG, TID
     Route: 042
  5. ACETAMINOPHEN [Concomitant]
     Dosage: 1000 MG, 4 TIMES DAILY
     Route: 042
  6. MORPHINE [Concomitant]
     Dosage: 10 MG, 4 TIMES DAILY
     Route: 058

REACTIONS (12)
  - Renal failure acute [Recovering/Resolving]
  - Oliguria [Unknown]
  - Tachycardia [Unknown]
  - Respiratory distress [Recovering/Resolving]
  - Hypotension [Unknown]
  - Lactic acidosis [Recovering/Resolving]
  - Hypothermia [Unknown]
  - Vomiting [Unknown]
  - Toxicity to various agents [Unknown]
  - Hypoglycaemia [Unknown]
  - Overdose [Recovering/Resolving]
  - Drug level increased [Recovering/Resolving]
